FAERS Safety Report 5484891-1 (Version None)
Quarter: 2007Q4

REPORT INFORMATION
  Report Type: 
  Country: None (occurrence: None)
  Receive Date: 20071010
  Receipt Date: 20070927
  Transmission Date: 20080405
  Serious: Yes (Hospitalization)
  Sender: FDA-Public Use
  Company Number: 2007SP015637

PATIENT
  Age: 28 Year
  Sex: Male
  Weight: 58 kg

DRUGS (4)
  1. CLARITIN [Suspect]
     Indication: PRURITUS
     Dosage: 10 MG; ; PO
     Route: 048
     Dates: end: 20070729
  2. TAVEGYL (NO PREF. NAME) [Suspect]
     Indication: PRURITUS
     Dosage: 1 DF; ; PO
  3. BUFFERIN A (BUFFERIN A) [Suspect]
     Indication: HEADACHE
     Dosage: 1 DF; ; PO
     Route: 048
     Dates: end: 20070728
  4. EVE QUICK (NO PREF. NAME) [Suspect]
     Indication: HEADACHE
     Dosage: 1 DF; ; PO
     Route: 048

REACTIONS (7)
  - CONDITION AGGRAVATED [None]
  - DERMATITIS ATOPIC [None]
  - ERYTHEMA MULTIFORME [None]
  - GENERALISED ERYTHEMA [None]
  - JOINT SWELLING [None]
  - OCULAR HYPERAEMIA [None]
  - UPPER RESPIRATORY TRACT INFLAMMATION [None]
